FAERS Safety Report 9063567 (Version 1)
Quarter: 2013Q1

REPORT INFORMATION
  Report Type: Report from Study
  Country: US (occurrence: US)
  Receive Date: 20130129
  Receipt Date: 20130129
  Transmission Date: 20140127
  Serious: No
  Sender: FDA-Public Use
  Company Number: US-ABBOTT-12P-163-0945126-00

PATIENT
  Sex: Male

DRUGS (4)
  1. HUMIRA 40 MG/0.8 ML PEN [Suspect]
     Indication: PSORIATIC ARTHROPATHY
     Route: 058
     Dates: start: 20111215
  2. PREDNISONE [Concomitant]
     Indication: MUSCULOSKELETAL STIFFNESS
     Dosage: INCREASED TO 15 MG DAILY
     Route: 048
  3. PREDNISONE [Concomitant]
     Indication: SWELLING
  4. PREDNISONE [Concomitant]
     Indication: JOINT STIFFNESS

REACTIONS (5)
  - Musculoskeletal stiffness [Unknown]
  - Drug ineffective [Unknown]
  - Local swelling [Unknown]
  - Arthralgia [Unknown]
  - Pharyngitis streptococcal [Recovered/Resolved]
